FAERS Safety Report 8806816 (Version 1)
Quarter: 2012Q4

REPORT INFORMATION
  Report Type: Spontaneous
  Country: GB (occurrence: None)
  Receive Date: 20120919
  Receipt Date: 20120919
  Transmission Date: 20130627
  Serious: Yes (Hospitalization, Other)
  Sender: FDA-Public Use
  Company Number: 2012-01358

PATIENT
  Age: 94 Year
  Sex: Female

DRUGS (9)
  1. SIMVASTATIN (UNKNOWN) [Suspect]
     Route: 048
     Dates: start: 20100426
  2. DILTIAZEM HYDROCHLORIDE [Suspect]
     Route: 048
     Dates: start: 20100426
  3. DILTIAZEM HYDROCHLORIDE [Suspect]
  4. ALLOPURINOL [Concomitant]
  5. ASPIRIN [Concomitant]
  6. IRON (FERROUS SULPHATE) [Concomitant]
  7. FRUSEMIDE (FUROSEMIDE) [Concomitant]
  8. MIRTAZAPINE [Concomitant]
  9. OMEPRAZOLE [Concomitant]

REACTIONS (5)
  - Fall [None]
  - Drug interaction [None]
  - Contusion [None]
  - Rhabdomyolysis [None]
  - Swelling face [None]
